FAERS Safety Report 9071687 (Version 1)
Quarter: 2013Q1

REPORT INFORMATION
  Report Type: Report from Study
  Country: US (occurrence: US)
  Receive Date: 20130129
  Receipt Date: 20130129
  Transmission Date: 20140127
  Serious: No
  Sender: FDA-Public Use
  Company Number: US-ABBOTT-12P-163-0926181-00

PATIENT
  Age: 43 Year
  Sex: Female

DRUGS (18)
  1. HUMIRA 40 MG/0.8 ML PEN [Suspect]
     Indication: RHEUMATOID ARTHRITIS
     Dates: start: 20120301
  2. FLONASE [Concomitant]
     Indication: SINUS CONGESTION
     Dosage: 2 SPRAYS IN EACH NOSTRIL DAILY
  3. ADVAIR [Concomitant]
     Indication: PRODUCT USED FOR UNKNOWN INDICATION
     Dosage: 500/50 1 PUFF TWICE A DAY
  4. XOPENEX [Concomitant]
     Indication: ASTHMA
  5. PLAQUENIL [Concomitant]
     Indication: PRODUCT USED FOR UNKNOWN INDICATION
  6. XANAX ER [Concomitant]
     Indication: INSOMNIA
     Dosage: AT BEDTIME
  7. XANAX ER [Concomitant]
     Indication: ANXIETY
  8. NEURONTIN [Concomitant]
     Indication: NERVE INJURY
     Dosage: 300 MG, 1 CAPSULE, SIX TIMES A DAY
  9. NEURONTIN [Concomitant]
     Indication: PAIN
  10. FLEXERIL [Concomitant]
     Indication: MUSCLE RELAXANT THERAPY
     Dosage: AT BEDTIME
  11. REQUIP [Concomitant]
     Indication: RESTLESS LEGS SYNDROME
     Dosage: AT BEDTIME
  12. PREDNISONE [Concomitant]
     Indication: PRODUCT USED FOR UNKNOWN INDICATION
     Dosage: 5 MG, 2 TABS DAILY
  13. ELAVIL [Concomitant]
     Indication: INSOMNIA
     Dosage: AT BEDTIME
  14. SINGULAIR [Concomitant]
     Indication: ASTHMA
     Dosage: AT BEDTIME
  15. SINGULAIR [Concomitant]
     Indication: PULMONARY CONGESTION
  16. CYMBALTA [Concomitant]
     Indication: DEPRESSION
     Dosage: 60 MG DAILY
  17. SOMA [Concomitant]
     Indication: PRODUCT USED FOR UNKNOWN INDICATION
  18. RELPAX [Concomitant]
     Indication: MIGRAINE
     Dosage: 40 MG DAILY, AS NEEDED

REACTIONS (2)
  - Rash [Not Recovered/Not Resolved]
  - Drug ineffective [Not Recovered/Not Resolved]
